FAERS Safety Report 24603132 (Version 1)
Quarter: 2024Q4

REPORT INFORMATION
  Report Type: Spontaneous
  Country: US (occurrence: US)
  Receive Date: 20241111
  Receipt Date: 20241111
  Transmission Date: 20250115
  Serious: Yes (Other)
  Sender: PFIZER
  Company Number: US-PFIZER INC-202400295950

PATIENT
  Age: 48 Year
  Sex: Female
  Weight: 90.718 kg

DRUGS (1)
  1. VANCOMYCIN HYDROCHLORIDE [Suspect]
     Active Substance: VANCOMYCIN HYDROCHLORIDE
     Indication: Bacterial infection
     Dosage: UNK

REACTIONS (5)
  - Gonorrhoea [Unknown]
  - Back pain [Unknown]
  - Bacterial infection [Unknown]
  - Gait disturbance [Unknown]
  - Arthritis infective [Unknown]
